FAERS Safety Report 21119619 (Version 1)
Quarter: 2022Q3

REPORT INFORMATION
  Report Type: Report from Study
  Country: ZW (occurrence: ZW)
  Receive Date: 20220722
  Receipt Date: 20220722
  Transmission Date: 20221027
  Serious: Yes (Other)
  Sender: FDA-Public Use
  Company Number: CLT-ZW-2022-0144-276501

PATIENT
  Age: 20 Year
  Sex: Female

DRUGS (5)
  1. LAMIVUDINE\TENOFOVIR DISOPROXIL FUMARATE [Suspect]
     Active Substance: LAMIVUDINE\TENOFOVIR DISOPROXIL FUMARATE
     Indication: HIV infection
     Dosage: 1 TAB/CAPS
     Route: 050
     Dates: start: 20210519, end: 20210615
  2. TIVICAY [Suspect]
     Active Substance: DOLUTEGRAVIR SODIUM
     Indication: HIV infection
     Dosage: 50 MG/DAY
     Route: 050
     Dates: start: 20210519, end: 20210615
  3. PREZISTA [Suspect]
     Active Substance: DARUNAVIR ETHANOLATE
     Indication: HIV infection
     Route: 050
     Dates: start: 20210616
  4. NORVIR [Suspect]
     Active Substance: RITONAVIR
     Indication: HIV infection
     Route: 050
     Dates: start: 20210616
  5. LAMIVUDINE AND ZIDOVUDINE [Suspect]
     Active Substance: LAMIVUDINE\ZIDOVUDINE
     Indication: HIV infection
     Dosage: 2 TAB/CAPS
     Route: 050
     Dates: start: 20210616

REACTIONS (1)
  - Abortion spontaneous [Unknown]

NARRATIVE: CASE EVENT DATE: 20210915
